FAERS Safety Report 9260764 (Version 1)
Quarter: 2013Q1

REPORT INFORMATION
  Report Type: Spontaneous
  Country: US (occurrence: None)
  Receive Date: 20121212
  Receipt Date: 20121212
  Transmission Date: 20140127
  Serious: No
  Sender: FDA-Public Use
  Company Number: 1210USA004390

PATIENT
  Age: 57 Year
  Sex: Female
  Weight: 84.8 kg

DRUGS (6)
  1. VICTRELIS (BOCEPREVIR) CAPSULE, 200MG [Suspect]
     Dosage: 4 DF, TID, ORAL
     Route: 048
  2. PEG-INTRON (PEGINTERFERON ALFA-2B) POWDER FOR INJECTION, 150MICROGRAM [Suspect]
     Dosage: 150 MICROGRAM/0.5 ML, QW (4SYR/PK), SUBCUTANEOUS
     Route: 058
  3. RIBAVIRIN (RIBAVIRIN) CAPSULE, 200MG [Suspect]
  4. CENTRUM (MINERALS (UNSPECIFIED) (+) VITAMINS (UNSPECIFIED)) (MINERALS (UNSPECIFIED) [Concomitant]
  5. VITAMINS [Concomitant]
  6. METOPROLOL (METOPROLOL) [Concomitant]

REACTIONS (6)
  - Cough [None]
  - Increased upper airway secretion [None]
  - Pain [None]
  - Dysgeusia [None]
  - Fatigue [None]
  - Abdominal discomfort [None]
